FAERS Safety Report 15886506 (Version 5)
Quarter: 2019Q1

REPORT INFORMATION
  Report Type: Report from Study
  Country: US (occurrence: US)
  Receive Date: 20190129
  Receipt Date: 20190325
  Transmission Date: 20190417
  Serious: Yes (Hospitalization, Other)
  Sender: FDA-Public Use
  Company Number: US-TESAROUBC-2018-TSO2373-US

PATIENT
  Age: 79 Year
  Sex: Female
  Weight: 83.45 kg

DRUGS (1)
  1. ZEJULA [Suspect]
     Active Substance: NIRAPARIB
     Indication: OVARIAN CANCER
     Dosage: 200 MG, QD, WITHOUT FOOD AT 8PM
     Route: 048
     Dates: start: 201810, end: 20190206

REACTIONS (12)
  - Blood count abnormal [Recovered/Resolved]
  - Heart rate increased [Not Recovered/Not Resolved]
  - Constipation [Recovered/Resolved]
  - Disease progression [Unknown]
  - Drug ineffective [Unknown]
  - Abdominal hernia [Unknown]
  - Blood pressure increased [Recovered/Resolved]
  - Dysgeusia [Not Recovered/Not Resolved]
  - Carbohydrate antigen 125 increased [Unknown]
  - Platelet count increased [Unknown]
  - Nausea [Not Recovered/Not Resolved]
  - Peripheral swelling [Unknown]

NARRATIVE: CASE EVENT DATE: 201811
